FAERS Safety Report 9628686 (Version 1)
Quarter: 2013Q4

REPORT INFORMATION
  Report Type: Spontaneous
  Country: GB (occurrence: GB)
  Receive Date: 20131017
  Receipt Date: 20131017
  Transmission Date: 20140711
  Serious: Yes (Other)
  Sender: FDA-Public Use
  Company Number: GB-UCBSA-099935

PATIENT
  Age: 58 Year
  Sex: Female
  Weight: 104 kg

DRUGS (10)
  1. KEPPRA [Suspect]
     Indication: EPILEPSY
     Dosage: UNKNOWN DOSE
     Dates: start: 201302, end: 2013
  2. KEPPRA [Suspect]
     Indication: EPILEPSY
     Dosage: REDUCED DOSE
     Dates: start: 2013, end: 2013
  3. KEPPRA [Suspect]
     Indication: EPILEPSY
     Dosage: RETURNED TO ORIGINAL DOSE
     Dates: start: 2013
  4. CITALOPRAM HYDROBROMIDE [Suspect]
     Indication: DEPRESSION
     Dosage: 10 MG
     Route: 048
     Dates: start: 20130301, end: 20130324
  5. ATORVASTATIN [Concomitant]
     Dosage: UNKNOWN DOSE
  6. CARBAMAZEPINE [Concomitant]
     Dosage: UNKNOWN DOSE
  7. CYANOCOBALAMIN [Concomitant]
     Dosage: UNKNOWN DOSE
  8. LAMOTRIGINE [Concomitant]
     Dosage: UNKNOWN DOSE
  9. LEVOTHYROXINE [Concomitant]
     Dosage: UNKNOWN DOSE
  10. METFORMIN [Concomitant]
     Dosage: UNKNOWN DOSE

REACTIONS (8)
  - Abnormal dreams [Unknown]
  - Epilepsy [Not Recovered/Not Resolved]
  - Epileptic aura [Unknown]
  - Dizziness [Unknown]
  - Headache [Unknown]
  - Abdominal pain upper [Unknown]
  - Blood cholesterol increased [Unknown]
  - Thyroid function test abnormal [Unknown]
